FAERS Safety Report 15586624 (Version 1)
Quarter: 2018Q4

REPORT INFORMATION
  Report Type: Spontaneous
  Country: US (occurrence: US)
  Receive Date: 20181105
  Receipt Date: 20181105
  Transmission Date: 20190205
  Serious: Yes (Other)
  Sender: FDA-Public Use
  Company Number: None

PATIENT
  Age: 59 Year
  Sex: Female
  Weight: 62.1 kg

DRUGS (4)
  1. MULTIVITAMINS [Concomitant]
     Active Substance: VITAMINS
  2. ASPIRIN. [Concomitant]
     Active Substance: ASPIRIN
  3. NADOLOL. [Suspect]
     Active Substance: NADOLOL
     Indication: MITRAL VALVE PROLAPSE
     Dosage: ?          QUANTITY:1 TABLET(S);?
     Route: 048
     Dates: start: 20180905, end: 20180914
  4. CORGARD [Concomitant]
     Active Substance: NADOLOL

REACTIONS (4)
  - Cardiac flutter [None]
  - Paraesthesia [None]
  - Angina pectoris [None]
  - Product substitution issue [None]

NARRATIVE: CASE EVENT DATE: 20180924
